FAERS Safety Report 24170155 (Version 7)
Quarter: 2025Q1

REPORT INFORMATION
  Report Type: Report from Study
  Country: GB (occurrence: GB)
  Receive Date: 20240803
  Receipt Date: 20250131
  Transmission Date: 20250408
  Serious: Yes (Other)
  Sender: NOVARTIS
  Company Number: GB-002147023-NVSC2024GB155862

PATIENT
  Age: 27 Year
  Sex: Female

DRUGS (2)
  1. KESIMPTA [Suspect]
     Active Substance: OFATUMUMAB
     Indication: Relapsing-remitting multiple sclerosis
     Dosage: 20 MG, QW
     Route: 058
     Dates: start: 20240722
  2. KESIMPTA [Suspect]
     Active Substance: OFATUMUMAB
     Dosage: 20 MG, QMO
     Route: 058

REACTIONS (14)
  - Seizure [Recovered/Resolved]
  - Multiple sclerosis relapse [Not Recovered/Not Resolved]
  - Headache [Unknown]
  - Neck pain [Unknown]
  - Tremor [Recovered/Resolved]
  - Hyperhidrosis [Recovered/Resolved]
  - Pyrexia [Recovered/Resolved]
  - Brain fog [Recovered/Resolved]
  - Feeling hot [Recovered/Resolved]
  - Nasopharyngitis [Recovered/Resolved]
  - Illness [Unknown]
  - Dizziness [Unknown]
  - Injection site pain [Recovered/Resolved]
  - Inappropriate schedule of product administration [Unknown]
